FAERS Safety Report 11558231 (Version 3)
Quarter: 2017Q1

REPORT INFORMATION
  Report Type: Spontaneous
  Country: IT (occurrence: IT)
  Receive Date: 20150928
  Receipt Date: 20170215
  Transmission Date: 20170428
  Serious: Yes (Death, Hospitalization, Other)
  Sender: FDA-Public Use
  Company Number: IT-PFIZER INC-2015314840

PATIENT
  Age: 74 Year
  Sex: Male

DRUGS (2)
  1. IRINOTECAN HCL [Suspect]
     Active Substance: IRINOTECAN HYDROCHLORIDE
     Indication: COLON CANCER METASTATIC
     Dosage: 180 MG/M2, CYCLIC
     Route: 042
     Dates: start: 20130910, end: 20130910
  2. ERBITUX [Suspect]
     Active Substance: CETUXIMAB
     Indication: COLON CANCER METASTATIC
     Dosage: 400 MG, CYCLIC
     Route: 042
     Dates: start: 20130910, end: 20130910

REACTIONS (8)
  - Thrombocytopenia [Fatal]
  - Colon cancer metastatic [Fatal]
  - Melaena [Recovered/Resolved]
  - Hyperbilirubinaemia [Fatal]
  - Leukopenia [Not Recovered/Not Resolved]
  - Anaemia [Fatal]
  - Febrile neutropenia [Fatal]
  - Disease progression [Fatal]

NARRATIVE: CASE EVENT DATE: 201309
